FAERS Safety Report 12841474 (Version 3)
Quarter: 2016Q4

REPORT INFORMATION
  Report Type: Report from Study
  Country: US (occurrence: US)
  Receive Date: 20161012
  Receipt Date: 20161202
  Transmission Date: 20170207
  Serious: Yes (Other)
  Sender: FDA-Public Use
  Company Number: US-GILEAD-2016-0231936

PATIENT
  Age: 62 Year
  Sex: Male
  Weight: 89.8 kg

DRUGS (2)
  1. AMBRISENTAN [Suspect]
     Active Substance: AMBRISENTAN
     Dosage: 10 MG, QD
     Route: 065
     Dates: start: 20160825, end: 20160926
  2. AMBRISENTAN [Suspect]
     Active Substance: AMBRISENTAN
     Indication: PULMONARY ARTERIAL HYPERTENSION
     Dosage: 5 MG, UNK
     Route: 065
     Dates: start: 20160811, end: 20160915

REACTIONS (5)
  - Oedema genital [Not Recovered/Not Resolved]
  - Urine output decreased [Recovered/Resolved]
  - Malaise [Recovered/Resolved]
  - Oedema peripheral [Not Recovered/Not Resolved]
  - Oedema [Recovered/Resolved]
